FAERS Safety Report 7723523-6 (Version None)
Quarter: 2011Q3

REPORT INFORMATION
  Report Type: 
  Country: None (occurrence: None)
  Receive Date: 20110901
  Receipt Date: 20110824
  Transmission Date: 20111222
  Serious: Yes (Other)
  Sender: FDA-Public Use
  Company Number: CH-SANOFI-AVENTIS-2011SA054819

PATIENT
  Age: 43 Year
  Sex: Female
  Weight: 73 kg

DRUGS (8)
  1. ELOXATIN [Suspect]
     Route: 041
     Dates: start: 20101215, end: 20110323
  2. FLUOROURACIL [Concomitant]
     Indication: ADJUVANT THERAPY
     Route: 041
     Dates: start: 20101215, end: 20110324
  3. MINALGIN [Concomitant]
     Route: 048
     Dates: start: 20110126, end: 20110223
  4. PANTOPRAZOLE [Concomitant]
     Route: 048
     Dates: start: 20100728, end: 20110408
  5. ELOXATIN [Suspect]
     Route: 041
     Dates: start: 20101215, end: 20110323
  6. ELOXATIN [Suspect]
     Indication: ADJUVANT THERAPY
     Route: 041
     Dates: start: 20101215, end: 20110323
  7. FRAXIFORTE [Concomitant]
     Route: 058
     Dates: start: 20110309, end: 20110603
  8. DIFLUCAN [Concomitant]
     Route: 048
     Dates: start: 20110309, end: 20110309

REACTIONS (5)
  - PERIPHERAL SENSORIMOTOR NEUROPATHY [None]
  - LHERMITTE'S SIGN [None]
  - PAIN [None]
  - ATAXIA [None]
  - POLYNEUROPATHY [None]
